FAERS Safety Report 10443662 (Version 2)
Quarter: 2014Q3

REPORT INFORMATION
  Report Type: Spontaneous
  Country: ES (occurrence: ES)
  Receive Date: 20140910
  Receipt Date: 20140910
  Transmission Date: 20150326
  Serious: Yes (Other)
  Sender: FDA-Public Use
  Company Number: ES-BRISTOL-MYERS SQUIBB COMPANY-21335211

PATIENT
  Age: 67 Year
  Sex: Female

DRUGS (1)
  1. SPRYCEL [Suspect]
     Active Substance: DASATINIB
     Indication: CHRONIC MYELOID LEUKAEMIA
     Dates: start: 201009, end: 20140818

REACTIONS (5)
  - Vitreous haemorrhage [Unknown]
  - Colitis ulcerative [Unknown]
  - Pulmonary arterial hypertension [Unknown]
  - Renal impairment [Unknown]
  - Pleural effusion [Unknown]

NARRATIVE: CASE EVENT DATE: 2011
